FAERS Safety Report 5479673-0 (Version None)
Quarter: 2007Q4

REPORT INFORMATION
  Report Type: 
  Country: None (occurrence: None)
  Receive Date: 20071008
  Receipt Date: 20070926
  Transmission Date: 20080405
  Serious: Yes (Death, Hospitalization)
  Sender: FDA-Public Use
  Company Number: B0489942A

PATIENT
  Age: 62 Year
  Sex: Female

DRUGS (4)
  1. ZOFRAN [Suspect]
     Dosage: 8MG PER DAY
     Route: 042
     Dates: start: 20070726, end: 20070816
  2. BEVACIZUMAB [Suspect]
     Route: 042
     Dates: start: 20070726, end: 20070816
  3. PACLITAXEL [Suspect]
     Dosage: 124MG PER DAY
     Route: 042
     Dates: start: 20070726, end: 20070816
  4. DEXAMETHASONE 0.5MG TAB [Suspect]
     Dosage: 20MG PER DAY
     Route: 042
     Dates: start: 20070726, end: 20070816

REACTIONS (12)
  - ABDOMINAL PAIN [None]
  - ABDOMINAL RIGIDITY [None]
  - ABDOMINAL TENDERNESS [None]
  - CEREBRAL DISORDER [None]
  - CONDITION AGGRAVATED [None]
  - INTESTINAL ISCHAEMIA [None]
  - INTESTINAL PERFORATION [None]
  - PERITONEAL EFFUSION [None]
  - PERITONITIS [None]
  - PNEUMOPERITONEUM [None]
  - RESPIRATORY DISORDER [None]
  - SEPTIC SHOCK [None]
